FAERS Safety Report 25481321 (Version 1)
Quarter: 2025Q2

REPORT INFORMATION
  Report Type: Spontaneous
  Country: JP (occurrence: JP)
  Receive Date: 20250626
  Receipt Date: 20250626
  Transmission Date: 20250717
  Serious: Yes (Other)
  Sender: SANOFI AVENTIS
  Company Number: JP-MEIJISEIKA-202503729_P_1

PATIENT
  Age: 7 Decade
  Sex: Female

DRUGS (3)
  1. REZUROCK [Suspect]
     Active Substance: BELUMOSUDIL
     Indication: Chronic graft versus host disease
     Dosage: 200 MG, QD
     Route: 048
  2. DAUNORUBICIN HYDROCHLORIDE [Suspect]
     Active Substance: DAUNORUBICIN HYDROCHLORIDE
     Indication: Acute myeloid leukaemia
     Route: 041
  3. CYTARABINE [Concomitant]
     Active Substance: CYTARABINE
     Route: 065

REACTIONS (4)
  - Acute myeloid leukaemia recurrent [Unknown]
  - Gastrointestinal haemorrhage [Unknown]
  - Nasopharyngitis [Unknown]
  - Pneumonia bacterial [Unknown]
